FAERS Safety Report 4578228-X (Version None)
Quarter: 2005Q1

REPORT INFORMATION
  Report Type: 
  Country: None (occurrence: None)
  Receive Date: 20050209
  Receipt Date: 20050126
  Transmission Date: 20050727
  Serious: Yes (Death)
  Sender: FDA-Public Use
  Company Number: 2004AL000573

PATIENT
  Age: 59 Year
  Sex: Female

DRUGS (1)
  1. KADIAN [Suspect]
     Dosage: PO
     Route: 048

REACTIONS (10)
  - ACIDOSIS [None]
  - BLOOD PH DECREASED [None]
  - CARDIO-RESPIRATORY ARREST [None]
  - COMA [None]
  - COMPLETED SUICIDE [None]
  - MULTIPLE DRUG OVERDOSE [None]
  - MYDRIASIS [None]
  - PCO2 DECREASED [None]
  - RHABDOMYOLYSIS [None]
  - TACHYCARDIA [None]
